FAERS Safety Report 6070219-5 (Version None)
Quarter: 2009Q1

REPORT INFORMATION
  Report Type: 
  Country: None (occurrence: None)
  Receive Date: 20090209
  Receipt Date: 20090127
  Transmission Date: 20090719
  Serious: Yes (Other)
  Sender: FDA-Public Use
  Company Number: US-ROCHE-523755

PATIENT
  Sex: Female
  Weight: 60.8 kg

DRUGS (5)
  1. BONIVA [Suspect]
     Indication: OSTEOPOROSIS
     Route: 065
     Dates: start: 20050501, end: 20071101
  2. ACIPHEX [Concomitant]
     Dosage: DOSE: 20 MG X 2
  3. TRAZODONE HCL [Concomitant]
     Indication: SLEEP DISORDER THERAPY
     Dosage: DOSE: 50 MG 2-3 BEDTIME
  4. ZIAC [Concomitant]
     Dosage: DOSE: ZIAC 5/6 .25 MG X 1
  5. LYRICA [Concomitant]
     Dosage: DOSE: 5 MG X 2

REACTIONS (10)
  - ARTHRALGIA [None]
  - BREAST CANCER RECURRENT [None]
  - CHILLS [None]
  - COSTOCHONDRITIS [None]
  - FEELING HOT [None]
  - HYPERHIDROSIS [None]
  - MUSCULOSKELETAL PAIN [None]
  - PAIN [None]
  - PAIN IN EXTREMITY [None]
  - PYREXIA [None]
